FAERS Safety Report 5131483-X (Version None)
Quarter: 2006Q4

REPORT INFORMATION
  Report Type: 
  Country: None (occurrence: None)
  Receive Date: 20061020
  Receipt Date: 20060502
  Transmission Date: 20070319
  Serious: Yes (Hospitalization)
  Sender: FDA-Public Use
  Company Number: FR-ROCHE-446683

PATIENT
  Age: 93 Year
  Sex: Female
  Weight: 43 kg

DRUGS (6)
  1. ROCEPHIN [Suspect]
     Route: 058
     Dates: start: 20051222, end: 20051226
  2. AERIUS [Concomitant]
     Dosage: 2 DF.
     Route: 048
  3. NEXIUM [Concomitant]
     Indication: DUODENAL ULCER
     Route: 048
  4. CORDARONE [Concomitant]
     Route: 048
  5. LEVOTHYROXINE SODIUM [Concomitant]
     Route: 048
  6. TARDYFERON [Concomitant]
     Indication: ANAEMIA
     Route: 048

REACTIONS (4)
  - COUGH [None]
  - DEHYDRATION [None]
  - OVERDOSE [None]
  - TOXIC EPIDERMAL NECROLYSIS [None]
